FAERS Safety Report 19363979 (Version 1)
Quarter: 2021Q2

REPORT INFORMATION
  Report Type: Spontaneous
  Country: US (occurrence: US)
  Receive Date: 20210603
  Receipt Date: 20210603
  Transmission Date: 20210717
  Serious: Yes (Other)
  Sender: FDA-Public Use
  Company Number: US-SA-2021SA182960

PATIENT
  Age: 73 Year
  Sex: Male

DRUGS (1)
  1. GOLD BOND ORIGINAL STRENGTH POWDER [Suspect]
     Active Substance: MENTHOL\ZINC OXIDE
     Dosage: UNK
     Dates: start: 1948, end: 2021

REACTIONS (2)
  - Injury [Not Recovered/Not Resolved]
  - Mesothelioma [Unknown]

NARRATIVE: CASE EVENT DATE: 2021
